FAERS Safety Report 12746269 (Version 1)
Quarter: 2016Q3

REPORT INFORMATION
  Report Type: Spontaneous
  Country: TW (occurrence: TW)
  Receive Date: 20160915
  Receipt Date: 20160915
  Transmission Date: 20161109
  Serious: Yes (Death, Other)
  Sender: FDA-Public Use
  Company Number: TW-ACTELION-A-CH2013-80380

PATIENT
  Age: 30 Year
  Sex: Male

DRUGS (4)
  1. TRACLEER [Suspect]
     Active Substance: BOSENTAN
     Indication: PULMONARY ARTERIAL HYPERTENSION
     Dosage: 125 MG, BID
     Route: 048
     Dates: start: 201109, end: 20130302
  2. TRACLEER [Suspect]
     Active Substance: BOSENTAN
     Dosage: 62.5 MG, BID
     Route: 048
     Dates: start: 201108, end: 201109
  3. SILDENAFIL. [Concomitant]
     Active Substance: SILDENAFIL
  4. REMODULIN [Concomitant]
     Active Substance: TREPROSTINIL

REACTIONS (11)
  - Cardiac failure [Fatal]
  - Extracorporeal membrane oxygenation [Fatal]
  - Disease progression [Fatal]
  - Pulmonary arterial hypertension [Fatal]
  - Haemodialysis [Unknown]
  - Swelling [Fatal]
  - Renal failure [Unknown]
  - Treatment noncompliance [Fatal]
  - Dysuria [Unknown]
  - Peritoneal dialysis [Unknown]
  - Device related infection [Unknown]

NARRATIVE: CASE EVENT DATE: 201208
